FAERS Safety Report 8070874-4 (Version None)
Quarter: 2012Q1

REPORT INFORMATION
  Report Type: 
  Country: None (occurrence: None)
  Receive Date: 20120125
  Receipt Date: 20120118
  Transmission Date: 20120608
  Serious: Yes (Other)
  Sender: FDA-Public Use
  Company Number: PHHY2012BR005209

PATIENT
  Age: 34 Year
  Sex: Male

DRUGS (4)
  1. MIDAZOLAM [Suspect]
     Indication: SCHIZOPHRENIA
  2. HALOPERIDOL [Suspect]
     Indication: SCHIZOPHRENIA
  3. DIAZEPAM [Suspect]
     Indication: SCHIZOPHRENIA
  4. CLONAZEPAM [Suspect]
     Indication: SCHIZOPHRENIA

REACTIONS (6)
  - HYPERTHERMIA [None]
  - AUTONOMIC NERVOUS SYSTEM IMBALANCE [None]
  - MENTAL STATUS CHANGES [None]
  - MUSCLE RIGIDITY [None]
  - NEUROLEPTIC MALIGNANT SYNDROME [None]
  - LEUKOCYTOSIS [None]
